FAERS Safety Report 8122938-4 (Version None)
Quarter: 2012Q1

REPORT INFORMATION
  Report Type: 
  Country: None (occurrence: None)
  Receive Date: 20120208
  Receipt Date: 20120202
  Transmission Date: 20120608
  Serious: Yes (Death, Other)
  Sender: FDA-Public Use
  Company Number: PHHY2012CH009648

PATIENT
  Age: 72 Year
  Sex: Male

DRUGS (3)
  1. PREDNISONE TAB [Suspect]
     Indication: IMMUNOSUPPRESSION
     Dosage: 10 MG, UNK
  2. CYCLOSPORINE [Suspect]
     Indication: IMMUNOSUPPRESSION
     Dosage: 75 MG, BID
  3. CYCLOSPORINE [Suspect]
     Dosage: 50 MG, BID

REACTIONS (6)
  - METASTASES TO LYMPH NODES [None]
  - KAPOSI'S SARCOMA [None]
  - HUMAN HERPESVIRUS 8 INFECTION [None]
  - SKIN ULCER [None]
  - NEUROENDOCRINE CARCINOMA OF THE SKIN [None]
  - ERYTHEMA [None]
